FAERS Safety Report 5861407-9 (Version None)
Quarter: 2008Q3

REPORT INFORMATION
  Report Type: 
  Country: None (occurrence: None)
  Receive Date: 20080827
  Receipt Date: 20080428
  Transmission Date: 20090109
  Serious: No
  Sender: FDA-Public Use
  Company Number: US-ABBOTT-08P-163-0449193-00

PATIENT
  Sex: Female
  Weight: 54.48 kg

DRUGS (9)
  1. COATED PDS [Suspect]
     Indication: ARTERIOSCLEROSIS
     Route: 048
     Dates: end: 20080421
  2. COATED PDS [Suspect]
     Route: 048
     Dates: start: 20080421, end: 20080422
  3. COATED PDS [Suspect]
     Route: 048
     Dates: start: 20080424
  4. ATORVASTATIN CALCIUM [Concomitant]
     Indication: DRUG USE FOR UNKNOWN INDICATION
  5. ANALAPRIL [Concomitant]
     Indication: BLOOD PRESSURE
  6. UBIDECARENONE [Concomitant]
     Indication: DRUG USE FOR UNKNOWN INDICATION
  7. ASPIRIN [Concomitant]
     Indication: DRUG USE FOR UNKNOWN INDICATION
  8. CENTRUM SILVER [Concomitant]
     Indication: DRUG USE FOR UNKNOWN INDICATION
  9. AQUAFLORA [Concomitant]
     Indication: DRUG USE FOR UNKNOWN INDICATION

REACTIONS (3)
  - ABDOMINAL PAIN UPPER [None]
  - CONSTIPATION [None]
  - INFREQUENT BOWEL MOVEMENTS [None]
